FAERS Safety Report 23713044 (Version 1)
Quarter: 2024Q2

REPORT INFORMATION
  Report Type: Spontaneous
  Country: US (occurrence: US)
  Receive Date: 20240405
  Receipt Date: 20240405
  Transmission Date: 20240716
  Serious: No
  Sender: FDA-Public Use
  Company Number: US-PFIZER INC-202400022630

PATIENT
  Age: 74 Year
  Sex: Female

DRUGS (1)
  1. CLINDAMYCIN [Suspect]
     Active Substance: CLINDAMYCIN
     Dosage: 1 DF

REACTIONS (4)
  - Drug hypersensitivity [Unknown]
  - Migraine [Unknown]
  - Vomiting [Unknown]
  - Nausea [Unknown]
